FAERS Safety Report 12284500 (Version 1)
Quarter: 2016Q2

REPORT INFORMATION
  Report Type: Report from Study
  Country: DE (occurrence: DE)
  Receive Date: 20160420
  Receipt Date: 20160420
  Transmission Date: 20160815
  Serious: Yes (Disabling)
  Sender: FDA-Public Use
  Company Number: DE-ROCHE-1657223

PATIENT
  Age: 75 Year
  Sex: Female
  Weight: 66.2 kg

DRUGS (11)
  1. CANDESARTAN [Concomitant]
     Active Substance: CANDESARTAN
     Dosage: DAYS
     Route: 048
     Dates: start: 20100601, end: 20151201
  2. CANDECOR COMP [Concomitant]
     Dosage: 16/12.5 MG?DAYS
     Route: 048
     Dates: start: 20151201
  3. LETROZOL [Concomitant]
     Active Substance: LETROZOLE
     Dosage: DAYS
     Route: 048
     Dates: start: 20160208
  4. BEVACIZUMAB [Suspect]
     Active Substance: BEVACIZUMAB
     Indication: BREAST CANCER
     Route: 042
     Dates: start: 20150612
  5. XGEVA [Concomitant]
     Active Substance: DENOSUMAB
  6. SPASMEX (GERMANY) [Concomitant]
     Indication: URINARY INCONTINENCE
     Dosage: DAYS
     Route: 048
     Dates: start: 20100701
  7. CALCIVIT D [Concomitant]
     Dosage: 400/600 MG
     Route: 048
     Dates: start: 20150814
  8. MONURIL [Concomitant]
     Active Substance: FOSFOMYCIN SODIUM
     Indication: CYSTITIS
     Dosage: ONCE
     Route: 048
     Dates: start: 20150811, end: 20150811
  9. BEVACIZUMAB [Suspect]
     Active Substance: BEVACIZUMAB
     Route: 042
     Dates: start: 20151218
  10. PACLITAXEL. [Concomitant]
     Active Substance: PACLITAXEL
     Indication: BREAST CANCER
     Dosage: 297-306 MG
     Route: 042
     Dates: start: 20150612, end: 20150925
  11. ATORVASTATIN [Concomitant]
     Active Substance: ATORVASTATIN
     Route: 048
     Dates: start: 20100601

REACTIONS (3)
  - Disease progression [Not Recovered/Not Resolved]
  - Polyneuropathy [Not Recovered/Not Resolved]
  - Pain [Not Recovered/Not Resolved]

NARRATIVE: CASE EVENT DATE: 20150901
